FAERS Safety Report 16372947 (Version 3)
Quarter: 2022Q4

REPORT INFORMATION
  Report Type: Spontaneous
  Country: SE (occurrence: SE)
  Receive Date: 20190530
  Receipt Date: 20221129
  Transmission Date: 20230113
  Serious: Yes (Death, Hospitalization, Other)
  Sender: FDA-Public Use
  Company Number: PHHY2019SE124613

PATIENT
  Age: 50 Year
  Sex: Female

DRUGS (4)
  1. TAFINLAR [Suspect]
     Active Substance: DABRAFENIB MESYLATE
     Indication: Malignant melanoma
     Dosage: UNK (START DATE: 11 MAR)
     Route: 065
  2. TAFINLAR [Suspect]
     Active Substance: DABRAFENIB MESYLATE
     Dosage: UNK (75 PERCENT LOWER DOSE)
     Route: 065
     Dates: start: 20190315, end: 20190321
  3. MEKINIST [Suspect]
     Active Substance: TRAMETINIB DIMETHYL SULFOXIDE
     Indication: Malignant melanoma
     Dosage: UNK
     Route: 065
     Dates: end: 20190321
  4. NOREPINEPHRINE [Concomitant]
     Active Substance: NOREPINEPHRINE
     Indication: Product used for unknown indication
     Dosage: UNK
     Route: 065

REACTIONS (17)
  - Septic shock [Fatal]
  - Blood pressure decreased [Fatal]
  - Heart rate increased [Fatal]
  - Renal failure [Fatal]
  - Tumour lysis syndrome [Fatal]
  - Arthralgia [Fatal]
  - Vomiting [Fatal]
  - Chills [Fatal]
  - Abdominal pain upper [Fatal]
  - Pyrexia [Fatal]
  - Multiple organ dysfunction syndrome [Unknown]
  - Circulatory collapse [Unknown]
  - Pulmonary oedema [Unknown]
  - Steatohepatitis [Unknown]
  - Uterine necrosis [Unknown]
  - Metastases to uterus [Unknown]
  - Vaginal haemorrhage [Unknown]
